FAERS Safety Report 4527456-8 (Version None)
Quarter: 2004Q4

REPORT INFORMATION
  Report Type: 
  Country: None (occurrence: None)
  Receive Date: 20041130
  Receipt Date: 20040914
  Transmission Date: 20050328
  Serious: No
  Sender: FDA-Public Use
  Company Number: WAES 0409USA01229

PATIENT
  Age: 76 Year
  Sex: Female

DRUGS (2)
  1. ZETIA [Suspect]
     Dosage: 10 MG, PO
     Route: 048
  2. ZETIA [Suspect]
     Dosage: 5 MG, PO
     Route: 048

REACTIONS (2)
  - MEDICATION ERROR [None]
  - MUSCULAR WEAKNESS [None]
